FAERS Safety Report 12179011 (Version 9)
Quarter: 2017Q3

REPORT INFORMATION
  Report Type: Report from Study
  Country: CO (occurrence: CO)
  Receive Date: 20160315
  Receipt Date: 20170915
  Transmission Date: 20171127
  Serious: Yes (Hospitalization, Other)
  Sender: FDA-Public Use
  Company Number: PHHY2016CO021098

PATIENT
  Age: 67 Year
  Sex: Female
  Weight: 54 kg

DRUGS (4)
  1. REVOLADE [Suspect]
     Active Substance: ELTROMBOPAG
     Dosage: 25 MG, QD
     Route: 048
     Dates: start: 20160817
  2. PROPRANOLOL [Concomitant]
     Active Substance: PROPRANOLOL HYDROCHLORIDE
     Indication: LIVER DISORDER
     Route: 065
  3. SPIRONOLACTONE. [Concomitant]
     Active Substance: SPIRONOLACTONE
     Indication: PRODUCT USED FOR UNKNOWN INDICATION
     Dosage: 25 MG, BID
     Route: 048
  4. REVOLADE [Suspect]
     Active Substance: ELTROMBOPAG
     Indication: IMMUNE THROMBOCYTOPENIC PURPURA
     Dosage: 25 MG, BID
     Route: 048
     Dates: start: 20140714

REACTIONS (24)
  - Varicose vein [Unknown]
  - Depressed mood [Unknown]
  - Upper limb fracture [Unknown]
  - Liver injury [Unknown]
  - Viral infection [Unknown]
  - Pyrexia [Not Recovered/Not Resolved]
  - Dizziness [Unknown]
  - Headache [Unknown]
  - Gastric disorder [Not Recovered/Not Resolved]
  - Feeling abnormal [Unknown]
  - Haemoglobin decreased [Unknown]
  - Malaise [Unknown]
  - Pain in extremity [Not Recovered/Not Resolved]
  - Abdominal distension [Unknown]
  - Coagulation time abnormal [Unknown]
  - Weight decreased [Unknown]
  - Platelet disorder [Unknown]
  - Coagulopathy [Unknown]
  - Fall [Unknown]
  - Wrist fracture [Unknown]
  - Vein disorder [Unknown]
  - Eating disorder [Unknown]
  - Platelet count decreased [Recovering/Resolving]
  - Contusion [Unknown]

NARRATIVE: CASE EVENT DATE: 20160227
